FAERS Safety Report 19375210 (Version 1)
Quarter: 2021Q2

REPORT INFORMATION
  Report Type: Other
  Country: RU (occurrence: RU)
  Receive Date: 20210604
  Receipt Date: 20210604
  Transmission Date: 20210717
  Serious: Yes (Hospitalization)
  Sender: FDA-Public Use
  Company Number: RU-ROCHE-2840512

PATIENT
  Age: 60 Year
  Sex: Female

DRUGS (4)
  1. FINGOLIMOD. [Concomitant]
     Active Substance: FINGOLIMOD
  2. OCRELIZUMAB. [Suspect]
     Active Substance: OCRELIZUMAB
     Indication: MULTIPLE SCLEROSIS
     Route: 065
     Dates: start: 2018
  3. TOCILIZUMAB. [Suspect]
     Active Substance: TOCILIZUMAB
     Indication: COVID-19 PNEUMONIA
     Route: 042
  4. INTERFERON BETA NOS [Concomitant]
     Active Substance: INTERFERON BETA

REACTIONS (3)
  - Off label use [Unknown]
  - No adverse event [Unknown]
  - COVID-19 pneumonia [Unknown]
